FAERS Safety Report 9122976 (Version 1)
Quarter: 2013Q1

REPORT INFORMATION
  Report Type: Spontaneous
  Country: US (occurrence: US)
  Receive Date: 20130227
  Receipt Date: 20130227
  Transmission Date: 20140127
  Serious: No
  Sender: FDA-Public Use
  Company Number: US-GLAXOSMITHKLINE-A1005227A

PATIENT
  Age: 46 Year
  Sex: Female

DRUGS (5)
  1. VALACYCLOVIR [Suspect]
     Indication: PROPHYLAXIS
     Dosage: 1TAB PER DAY
     Route: 048
     Dates: start: 20121020
  2. FISH OIL [Concomitant]
  3. ASPIRIN [Concomitant]
  4. THYROID MEDICATION [Concomitant]
  5. VITAMIN B12 [Concomitant]

REACTIONS (6)
  - Herpes virus infection [Not Recovered/Not Resolved]
  - Chills [Unknown]
  - Nausea [Recovered/Resolved]
  - Pain [Unknown]
  - Burning sensation [Unknown]
  - Drug ineffective [Unknown]
